FAERS Safety Report 10014411 (Version 1)
Quarter: 2014Q1

REPORT INFORMATION
  Report Type: Spontaneous
  Country: US (occurrence: US)
  Receive Date: 20140317
  Receipt Date: 20140317
  Transmission Date: 20141002
  Serious: Yes (Hospitalization)
  Sender: FDA-Public Use
  Company Number: US-BRISTOL-MYERS SQUIBB COMPANY-20384947

PATIENT
  Age: 76 Year
  Sex: Female
  Weight: 68.03 kg

DRUGS (5)
  1. ELIQUIS [Suspect]
     Indication: CEREBROVASCULAR ACCIDENT
     Dates: start: 201401
  2. BENICAR [Concomitant]
  3. LASIX [Concomitant]
  4. AMLODIPINE [Concomitant]
  5. JANUVIA [Concomitant]

REACTIONS (3)
  - Chest pain [Unknown]
  - Dizziness [Unknown]
  - Dyspnoea [Unknown]
